FAERS Safety Report 7584655-9 (Version None)
Quarter: 2011Q2

REPORT INFORMATION
  Report Type: 
  Country: None (occurrence: None)
  Receive Date: 20110630
  Receipt Date: 20110627
  Transmission Date: 20111010
  Serious: Yes (Disabling, Other)
  Sender: FDA-Public Use
  Company Number: US-PFIZER INC-2011102381

PATIENT
  Sex: Female

DRUGS (22)
  1. ACETYLSALICYLIC ACID [Concomitant]
     Dosage: 81 MG, QD (EVERY DAY)
     Route: 048
  2. RANITIDINE HYDROCHLORIDE [Concomitant]
     Dosage: 150 MG, QD (EVERY DAY)
     Route: 048
  3. OXYBUTYNIN CHLORIDE [Concomitant]
     Dosage: 10 MG XR24H 1-2 TABLETS, QD (EVERY DAY)
     Route: 048
  4. IRON [Concomitant]
     Dosage: 2 TABLETS, QD (EVERY DAY)
     Route: 048
  5. CALTRATE 600+D [Concomitant]
  6. COLACE [Concomitant]
     Dosage: 100 MG, 3X/DAY
     Route: 048
  7. AMIODARONE HYDROCHLORIDE [Concomitant]
     Dosage: 200 MG, QD (EVERY DAY)
     Route: 048
  8. ASCORBIC ACID [Concomitant]
     Dosage: 500 MG, UNK
     Route: 048
  9. LIPITOR [Suspect]
     Indication: HYPERLIPIDAEMIA
     Dosage: 10 MG, DAILY
     Route: 048
     Dates: start: 20101213, end: 20110125
  10. CLONIDINE HYDROCHLORIDE [Concomitant]
     Dosage: 0.3 MG, 3X/DAY
     Route: 048
  11. STOOL SOFTENER [Concomitant]
     Dosage: 3 TABLETS QD (EVERY DAY)
     Route: 048
  12. PLAVIX [Concomitant]
     Dosage: 75 MG, QD (EVERY DAY)
     Route: 048
  13. COREG [Concomitant]
     Dosage: 12.5 MG, 2X/DAY
     Route: 048
  14. FUROSEMIDE [Concomitant]
     Indication: OEDEMA
     Dosage: 40 MG, QD (EVERY DAY) AS NEEDED
     Route: 048
  15. SENNA [Concomitant]
     Dosage: 2 TABLETS, 2X/DAY
     Route: 048
  16. OXYBUTYNIN CHLORIDE [Concomitant]
     Dosage: 5 MG, 2X/DAY
     Route: 048
  17. CENTRUM SILVER [Concomitant]
     Dosage: 1 TABLET QD (EVERY DAY)
     Route: 048
  18. SPIRONOLACTONE W/ HYDROCHLOROTHIAZIDE [Concomitant]
     Dosage: 50MG, QD (EVERY DAY)
     Route: 048
  19. AMBIEN [Concomitant]
     Dosage: 10 MG, QD (EVERY DAY)
     Route: 048
  20. LACTULOSE [Concomitant]
     Dosage: 10 G/15 ML SOLN QD (EVERY DAY)
  21. CYCLOBENZAPRINE HYDROCHLORIDE [Concomitant]
     Dosage: 5 MG, AS NEEDED
  22. PROTONIX [Concomitant]

REACTIONS (3)
  - ASTHENIA [None]
  - FALL [None]
  - HIP FRACTURE [None]
